FAERS Safety Report 13289484 (Version 8)
Quarter: 2017Q3

REPORT INFORMATION
  Report Type: Spontaneous
  Country: US (occurrence: US)
  Receive Date: 20170303
  Receipt Date: 20170925
  Transmission Date: 20171127
  Serious: Yes (Other)
  Sender: FDA-Public Use
  Company Number: PHEH2017US006403

PATIENT
  Sex: Female
  Weight: 73.47 kg

DRUGS (2)
  1. ZOFRAN [Suspect]
     Active Substance: ONDANSETRON HYDROCHLORIDE
     Indication: VOMITING IN PREGNANCY
     Dosage: 08 MG, UNK
     Route: 048
     Dates: start: 20061017, end: 20061024
  2. ONDANSETRON [Suspect]
     Active Substance: ONDANSETRON
     Indication: PRODUCT USED FOR UNKNOWN INDICATION
     Route: 048

REACTIONS (7)
  - Nephrolithiasis [Unknown]
  - Emotional distress [Unknown]
  - Intestinal ischaemia [Unknown]
  - Road traffic accident [Unknown]
  - Maternal exposure during pregnancy [Unknown]
  - Vascular wall hypertrophy [Unknown]
  - Product use in unapproved indication [Unknown]
